FAERS Safety Report 22251515 (Version 1)
Quarter: 2023Q2

REPORT INFORMATION
  Report Type: Spontaneous
  Country: SE (occurrence: SE)
  Receive Date: 20230425
  Receipt Date: 20230425
  Transmission Date: 20230721
  Serious: Yes (Other)
  Sender: FDA-Public Use
  Company Number: None

PATIENT
  Age: 83 Year
  Sex: Male

DRUGS (7)
  1. VYNDAQEL [Suspect]
     Active Substance: TAFAMIDIS MEGLUMINE
     Indication: Hereditary neuropathic amyloidosis
     Dosage: 61 MG, DAILY
     Route: 048
     Dates: start: 20200803
  2. ELIQUIS [Concomitant]
     Active Substance: APIXABAN
     Dosage: 2.5 MG, 2X/DAY (EVERY 12TH HOUR)
     Route: 048
     Dates: start: 20210215
  3. ERYTHROPOIETIN [Concomitant]
     Active Substance: ERYTHROPOIETIN
     Dosage: 20000 IU/ML, ONCE WEEKLY
     Route: 058
  4. CANDESARSTAD [Concomitant]
     Dosage: 8 MG, DAILY
     Route: 048
  5. OPTIMOL [TIMOLOL MALEATE] [Concomitant]
     Dosage: UNK, 2X/DAY (EVERY 12TH HOUR)
     Route: 047
  6. ALLOPURINOL [Concomitant]
     Active Substance: ALLOPURINOL
     Dosage: 100 MG, DAILY
     Route: 048
  7. LATANOPROST ACTAVIS [Concomitant]
     Dosage: 50 UG/ML, DAILY
     Route: 047

REACTIONS (2)
  - Urinary retention [Unknown]
  - Condition aggravated [Unknown]

NARRATIVE: CASE EVENT DATE: 20200803
